FAERS Safety Report 7728809-7 (Version None)
Quarter: 2011Q3

REPORT INFORMATION
  Report Type: 
  Country: None (occurrence: None)
  Receive Date: 20110906
  Receipt Date: 20110203
  Transmission Date: 20111222
  Serious: Yes (Other)
  Sender: FDA-Public Use
  Company Number: NO-BAYER-2011-010673

PATIENT
  Age: 33 Year
  Sex: Female

DRUGS (2)
  1. MIRENA [Suspect]
     Indication: CONTRACEPTION
     Dosage: UNK
     Dates: start: 20100301, end: 20110126
  2. MIRENA [Suspect]
     Indication: MENORRHAGIA
     Dosage: UNK
     Dates: start: 20110126

REACTIONS (5)
  - MENORRHAGIA [None]
  - COITAL BLEEDING [None]
  - DEVICE EXPULSION [None]
  - METRORRHAGIA [None]
  - CERVICAL POLYP [None]
